FAERS Safety Report 23137741 (Version 1)
Quarter: 2023Q4

REPORT INFORMATION
  Report Type: Spontaneous
  Country: GR (occurrence: GR)
  Receive Date: 20231102
  Receipt Date: 20231102
  Transmission Date: 20240109
  Serious: Yes (Other)
  Sender: FDA-Public Use
  Company Number: GR-Merck Healthcare KGaA-2023481729

PATIENT
  Age: 90 Year
  Sex: Male

DRUGS (5)
  1. ATORVASTATIN\EZETIMIBE [Suspect]
     Active Substance: ATORVASTATIN\EZETIMIBE
     Indication: Acute myocardial infarction
     Dosage: ATORVA/EZE 40/10 MG
  2. CLOPIDOGREL [Suspect]
     Active Substance: CLOPIDOGREL BISULFATE
     Indication: Acute myocardial infarction
     Dosage: (300 MG LOADING) PLUS 75 MG/DAY.
  3. RAMIPRIL [Suspect]
     Active Substance: RAMIPRIL
     Indication: Acute myocardial infarction
     Dosage: 5 (UNSPECIFIED UNITS)
  4. BISOPROLOL [Suspect]
     Active Substance: BISOPROLOL\BISOPROLOL FUMARATE
     Indication: Acute myocardial infarction
     Dosage: UNK
  5. ASPIRIN [Suspect]
     Active Substance: ASPIRIN
     Indication: Acute myocardial infarction
     Dosage: UNK

REACTIONS (5)
  - Bradycardia [Unknown]
  - Respiratory arrest [Unknown]
  - Ventricular tachycardia [Unknown]
  - Off label use [Unknown]
  - Acute pulmonary oedema [Unknown]
